FAERS Safety Report 25405028 (Version 1)
Quarter: 2025Q2

REPORT INFORMATION
  Report Type: Spontaneous
  Country: US (occurrence: US)
  Receive Date: 20250606
  Receipt Date: 20250606
  Transmission Date: 20250716
  Serious: Yes (Other)
  Sender: RANBAXY
  Company Number: US-MIMS-SUN-2025-USA-55007

PATIENT
  Sex: Female

DRUGS (1)
  1. LEVULAN KERASTICK [Suspect]
     Active Substance: AMINOLEVULINIC ACID HYDROCHLORIDE
     Indication: Product used for unknown indication
     Route: 061

REACTIONS (9)
  - Hypertensive emergency [Unknown]
  - Presyncope [Unknown]
  - Pain [Unknown]
  - Erythema [Unknown]
  - Skin exfoliation [Unknown]
  - Discomfort [Unknown]
  - Gait disturbance [Unknown]
  - Scab [Unknown]
  - Blister [Unknown]
